FAERS Safety Report 16001989 (Version 1)
Quarter: 2019Q1

REPORT INFORMATION
  Report Type: Spontaneous
  Country: FR (occurrence: FR)
  Receive Date: 20190225
  Receipt Date: 20190225
  Transmission Date: 20190418
  Serious: Yes (Life-Threatening, Hospitalization, Other)
  Sender: FDA-Public Use
  Company Number: FR-PFIZER INC-2019075075

PATIENT
  Age: 45 Year
  Sex: Female
  Weight: 119 kg

DRUGS (11)
  1. PANTOPRAZOLE [Concomitant]
     Active Substance: PANTOPRAZOLE
     Dosage: 20 MG, DAILY
     Route: 048
     Dates: start: 20181116, end: 20181230
  2. MEROPENEM. [Suspect]
     Active Substance: MEROPENEM
     Indication: MENINGITIS MENINGOCOCCAL
     Dosage: 2 G, 3X/DAY (2GX3)
     Route: 042
     Dates: start: 20181126, end: 20181228
  3. FOSFOMYCIN [Suspect]
     Active Substance: FOSFOMYCIN
     Indication: MENINGITIS MENINGOCOCCAL
     Dosage: 4 GX4
     Route: 042
     Dates: start: 20181229, end: 20190101
  4. FOSFOMYCIN [Suspect]
     Active Substance: FOSFOMYCIN
     Dosage: 4 G X2
     Route: 042
     Dates: start: 20190102, end: 20190107
  5. VANCOMYCINE [VANCOMYCIN] [Concomitant]
     Active Substance: VANCOMYCIN
     Indication: MENINGITIS MENINGOCOCCAL
     Dosage: UNK
     Route: 042
     Dates: start: 20181126, end: 20181228
  6. MEROPENEM. [Suspect]
     Active Substance: MEROPENEM
     Dosage: 2 G, 2X/DAY
     Route: 042
     Dates: start: 20181229, end: 20190105
  7. AZTREONAM. [Concomitant]
     Active Substance: AZTREONAM
     Dosage: UNK
     Dates: start: 20190108
  8. PANTOPRAZOLE [Concomitant]
     Active Substance: PANTOPRAZOLE
     Indication: PROPHYLAXIS AGAINST GASTROINTESTINAL ULCER
     Dosage: 20 MG, DAILY
     Route: 048
     Dates: start: 20181020, end: 20181113
  9. FOSFOMYCIN [Suspect]
     Active Substance: FOSFOMYCIN
     Dosage: 4G X3
     Route: 042
     Dates: start: 20190108, end: 20190108
  10. TARDYFERON [Concomitant]
     Active Substance: FERROUS SULFATE
     Indication: IRON DEFICIENCY
     Dosage: 80 MGX2/DAY
     Route: 048
     Dates: start: 20181121, end: 20190102
  11. COLISTIN [Concomitant]
     Active Substance: COLISTIN
     Dosage: UNK
     Dates: start: 20190108

REACTIONS (6)
  - Drug reaction with eosinophilia and systemic symptoms [Recovering/Resolving]
  - Pruritus [Recovering/Resolving]
  - Skin exfoliation [Recovering/Resolving]
  - Erythema [Recovering/Resolving]
  - Agranulocytosis [Recovering/Resolving]
  - Oedema [Recovering/Resolving]

NARRATIVE: CASE EVENT DATE: 20190101
